FAERS Safety Report 21203515 (Version 2)
Quarter: 2022Q3

REPORT INFORMATION
  Report Type: Spontaneous
  Country: US (occurrence: US)
  Receive Date: 20220811
  Receipt Date: 20220826
  Transmission Date: 20221026
  Serious: Yes (Other)
  Sender: FDA-Public Use
  Company Number: US-TEVA-2022-US-2062771

PATIENT
  Sex: Female

DRUGS (20)
  1. DAUNORUBICIN [Suspect]
     Active Substance: DAUNORUBICIN
     Indication: Acute lymphocytic leukaemia
     Dosage: INDUCTION CHEMOTHERAPY; FOR 4 WEEKS
     Route: 042
     Dates: start: 201112, end: 201201
  2. HYDROCORTISONE [Suspect]
     Active Substance: HYDROCORTISONE
     Indication: Product used for unknown indication
     Route: 065
  3. METHOTREXATE [Suspect]
     Active Substance: METHOTREXATE
     Indication: Acute lymphocytic leukaemia recurrent
     Dosage: INDUCTION CHEMOTHERAPY;FOR 4 WEEKS
     Route: 037
     Dates: start: 201112, end: 201201
  4. METHOTREXATE [Suspect]
     Active Substance: METHOTREXATE
     Indication: Acute lymphocytic leukaemia
     Dosage: CONSOLIDATION THERAPY
     Route: 037
     Dates: start: 201204
  5. METHOTREXATE [Suspect]
     Active Substance: METHOTREXATE
     Dosage: ONCE AT THE START OF THERAPY AND ON HER DAY 6 AND DAY 35 OF THE TREATMENT
     Route: 037
     Dates: start: 202001, end: 202002
  6. METHOTREXATE [Suspect]
     Active Substance: METHOTREXATE
     Dosage: MAINTENANCE THERAPY
     Route: 065
     Dates: start: 201211, end: 201404
  7. VINCRISTINE [Suspect]
     Active Substance: VINCRISTINE
     Indication: Acute lymphocytic leukaemia
     Dosage: INDUCTION CHEMOTHERAPY; FOR 4 WEEKS
     Route: 042
     Dates: start: 201112, end: 201201
  8. VINCRISTINE [Suspect]
     Active Substance: VINCRISTINE
     Indication: Acute lymphocytic leukaemia
     Dosage: CONSOLIDATION THERAPY
     Route: 042
     Dates: start: 201204
  9. VINCRISTINE [Suspect]
     Active Substance: VINCRISTINE
     Indication: Acute lymphocytic leukaemia
     Dosage: MAINTENANCE THERAPY
     Route: 065
     Dates: start: 201211, end: 201404
  10. PEG/L-ASPARAGINASE [Suspect]
     Active Substance: PEGASPARGASE
     Indication: Acute lymphocytic leukaemia
     Dosage: INDUCTION CHEMOTHERAPY; FOR 4 WEEKS
     Route: 030
     Dates: start: 201112, end: 201201
  11. PEG/L-ASPARAGINASE [Suspect]
     Active Substance: PEGASPARGASE
     Dosage: CONSOLIDATION THERAPY
     Route: 030
     Dates: start: 201204
  12. CYTARABINE [Suspect]
     Active Substance: CYTARABINE
     Indication: Acute lymphocytic leukaemia recurrent
     Dosage: INDUCTION CHEMOTHERAPY; FOR 4 WEEKS
     Route: 037
     Dates: start: 201112, end: 201201
  13. CYTARABINE [Suspect]
     Active Substance: CYTARABINE
     Dosage: CONSOLIDATION THERAPY
     Route: 065
     Dates: start: 201204
  14. CYTARABINE [Suspect]
     Active Substance: CYTARABINE
     Dosage: MAINTENANCE THERAPY
     Route: 065
     Dates: start: 201211, end: 201404
  15. CYTARABINE [Suspect]
     Active Substance: CYTARABINE
     Dosage: ON HER DAY 6 AND DAY 35 OF THE TREATMENT
     Route: 065
     Dates: start: 202001, end: 202002
  16. CYCLOPHOSPHAMIDE [Suspect]
     Active Substance: CYCLOPHOSPHAMIDE
     Indication: Acute lymphocytic leukaemia
     Dosage: CONSOLIDATION THERAPY
     Route: 042
     Dates: start: 201204
  17. MERCAPTOPURINE [Suspect]
     Active Substance: MERCAPTOPURINE
     Indication: Acute lymphocytic leukaemia
     Dosage: CONSOLIDATION THERAPY
     Route: 048
     Dates: start: 201204
  18. THIOGUANINE [Suspect]
     Active Substance: THIOGUANINE
     Indication: Acute lymphocytic leukaemia
     Dosage: MAINTENANCE THERAPY
     Route: 065
     Dates: start: 201211, end: 201404
  19. INOTUZUMAB OZOGAMICIN [Suspect]
     Active Substance: INOTUZUMAB OZOGAMICIN
     Indication: Acute lymphocytic leukaemia recurrent
     Route: 042
     Dates: start: 202001, end: 202002
  20. ASPARAGINASE [Suspect]
     Active Substance: ASPARAGINASE
     Indication: Acute lymphocytic leukaemia
     Dosage: MAINTENANCE THERAPY
     Route: 065
     Dates: start: 201211, end: 201404

REACTIONS (4)
  - Deep vein thrombosis [Unknown]
  - Drug hypersensitivity [Unknown]
  - Ovarian failure [Not Recovered/Not Resolved]
  - Drug ineffective [Unknown]

NARRATIVE: CASE EVENT DATE: 20200101
